FAERS Safety Report 26065106 (Version 1)
Quarter: 2025Q4

REPORT INFORMATION
  Report Type: Spontaneous
  Country: CA (occurrence: CA)
  Receive Date: 20251119
  Receipt Date: 20251119
  Transmission Date: 20260118
  Serious: Yes (Hospitalization, Other)
  Sender: SEPTODONT
  Company Number: CA-SEPTODONT-2025020183

PATIENT
  Age: 5 Day
  Sex: Male

DRUGS (1)
  1. PRILOCAINE [Suspect]
     Active Substance: PRILOCAINE
     Indication: Tongue tie operation
     Route: 004

REACTIONS (5)
  - Methaemoglobinaemia [Recovering/Resolving]
  - Cyanosis central [Recovering/Resolving]
  - Oxygen saturation decreased [Recovering/Resolving]
  - Pallor [Recovering/Resolving]
  - Lethargy [Recovering/Resolving]
